FAERS Safety Report 9494463 (Version 1)
Quarter: 2013Q3

REPORT INFORMATION
  Report Type: Spontaneous
  Country: US (occurrence: US)
  Receive Date: 20130903
  Receipt Date: 20130903
  Transmission Date: 20140515
  Serious: Yes (Hospitalization)
  Sender: FDA-Public Use
  Company Number: US-GENZYME-FABR-1003547

PATIENT
  Sex: Male
  Weight: 58.96 kg

DRUGS (4)
  1. FABRAZYME [Suspect]
     Indication: FABRY^S DISEASE
     Dosage: 60 U/KG, Q2W
     Route: 042
     Dates: start: 201201
  2. TYLENOL [Concomitant]
     Indication: PREMEDICATION
     Dosage: 1000 MG, UNK
     Route: 065
  3. CLARITIN [Concomitant]
     Indication: PREMEDICATION
     Dosage: UNK
     Route: 065
  4. ACE INHIBITOR NOS [Concomitant]
     Indication: PRODUCT USED FOR UNKNOWN INDICATION
     Dosage: UNK
     Route: 065

REACTIONS (1)
  - Renal failure chronic [Unknown]
